FAERS Safety Report 16444742 (Version 1)
Quarter: 2019Q2

REPORT INFORMATION
  Report Type: Spontaneous
  Country: US (occurrence: US)
  Receive Date: 20190508
  Receipt Date: 20190508
  Transmission Date: 20190711
  Serious: Yes (Other)
  Sender: FDA-Public Use
  Company Number: None

PATIENT
  Age: 80 Year
  Sex: Female
  Weight: 52.62 kg

DRUGS (1)
  1. REPATHA [Suspect]
     Active Substance: EVOLOCUMAB

REACTIONS (8)
  - Back pain [None]
  - Rhinorrhoea [None]
  - Pulmonary congestion [None]
  - Vomiting [None]
  - Influenza [None]
  - Diarrhoea [None]
  - Palpitations [None]
  - Headache [None]
